FAERS Safety Report 9630754 (Version 1)
Quarter: 2013Q4

REPORT INFORMATION
  Report Type: Spontaneous
  Country: GB (occurrence: None)
  Receive Date: 20131011
  Receipt Date: 20131011
  Transmission Date: 20140711
  Serious: Yes (Life-Threatening)
  Sender: FDA-Public Use
  Company Number: AUR-APL-2013-08244

PATIENT
  Age: 50 Year
  Sex: Male

DRUGS (12)
  1. CLOPIDOGREL [Suspect]
     Indication: CARDIOVASCULAR DISORDER
     Route: 048
  2. XARELTO (RIVAROXABAN) [Suspect]
     Route: 048
  3. BISOPROLOL (BISOPROLOL) [Concomitant]
  4. CALCEOS (LEKOVIT CA) [Concomitant]
  5. FLUOXETINE (FLUOXETINE) [Concomitant]
  6. ISOSORBIDE MONITRATE (ISOSORBIDE MONITRATE) [Concomitant]
  7. NICORANDIL (NICORANDIL) [Concomitant]
  8. NOVOMIX (NOVOMIX) [Concomitant]
  9. RAMIPRIL (RAMIPRIL) [Concomitant]
  10. RISEDRONATE SODIUM HYDRATE [Concomitant]
  11. THIAMINE (THIAMINE) [Concomitant]
  12. VITAMIN B SUBSTANCES (VITAMIN B COMPLEX) [Concomitant]

REACTIONS (2)
  - Cerebral haemorrhage [None]
  - Vomiting [None]
